FAERS Safety Report 14147332 (Version 1)
Quarter: 2017Q4

REPORT INFORMATION
  Report Type: Spontaneous
  Country: DE (occurrence: DE)
  Receive Date: 20171031
  Receipt Date: 20171031
  Transmission Date: 20180321
  Serious: Yes (Other)
  Sender: FDA-Public Use
  Company Number: PHHY2017DE138657

PATIENT
  Sex: Female

DRUGS (2)
  1. ZYKADIA [Suspect]
     Active Substance: CERITINIB
     Indication: PRODUCT USED FOR UNKNOWN INDICATION
     Dosage: UNK
     Route: 065
  2. ZYKADIA [Suspect]
     Active Substance: CERITINIB
     Dosage: 4 DF, QD
     Route: 065

REACTIONS (4)
  - Metastases to central nervous system [Unknown]
  - Metastases to liver [Unknown]
  - Nausea [Unknown]
  - Diarrhoea [Unknown]
